FAERS Safety Report 20162470 (Version 1)
Quarter: 2021Q4

REPORT INFORMATION
  Report Type: Other
  Country: None (occurrence: US)
  Receive Date: 20211208
  Receipt Date: 20211208
  Transmission Date: 20220303
  Serious: Yes (Other)
  Sender: FDA-Public Use
  Company Number: US-RIGHT VALUE DRUG STORES, LLC-2122820

PATIENT
  Age: 62 Year

DRUGS (3)
  1. TESTOSTERONE [Suspect]
     Active Substance: TESTOSTERONE
     Route: 058
     Dates: start: 20210623
  2. TESTOSTERONE [Suspect]
     Active Substance: TESTOSTERONE
     Route: 058
     Dates: start: 20210623
  3. NP THYROID [Suspect]
     Active Substance: LEVOTHYROXINE\LIOTHYRONINE

REACTIONS (1)
  - Exercise test abnormal [None]
